FAERS Safety Report 7925815-4 (Version None)
Quarter: 2011Q4

REPORT INFORMATION
  Report Type: 
  Country: None (occurrence: None)
  Receive Date: 20111118
  Receipt Date: 20110413
  Transmission Date: 20120403
  Serious: No
  Sender: FDA-Public Use
  Company Number: US-AMGEN-USASP2011019594

PATIENT
  Age: 68 Year
  Sex: Female
  Weight: 54.422 kg

DRUGS (15)
  1. LIPITOR [Concomitant]
     Dosage: 10 MG, UNK
  2. FOLIC ACID [Concomitant]
     Dosage: 1 MG, UNK
  3. LISINOPRIL [Concomitant]
     Dosage: 5 MG, UNK
  4. CEFUROXIME [Concomitant]
     Dosage: 500 MG, UNK
  5. NITROFURANTOIN [Concomitant]
     Dosage: 100 MG, UNK
  6. CALCIUM [Concomitant]
     Dosage: 500 UNK, UNK
  7. MULTIVITAMIN                       /00097801/ [Concomitant]
  8. RESTASIS [Concomitant]
     Dosage: 0.05 %, UNK
  9. ENBREL [Suspect]
     Indication: PRODUCT USED FOR UNKNOWN INDICATION
     Dosage: 50 MG, 2 TIMES/WK
     Route: 058
  10. PRILOSEC [Concomitant]
     Dosage: 10 MG, UNK
  11. CO Q 10 [Concomitant]
  12. FLAXSEED OIL [Concomitant]
  13. IRON [Concomitant]
     Dosage: 18 MG, UNK
  14. METHADONE HCL [Concomitant]
     Dosage: 5 MG, UNK
  15. VITAMIN D [Concomitant]
     Dosage: 400 IU, UNK

REACTIONS (1)
  - URINARY TRACT INFECTION [None]
